FAERS Safety Report 6496923-2 (Version None)
Quarter: 2009Q4

REPORT INFORMATION
  Report Type: 
  Country: None (occurrence: None)
  Receive Date: 20091215
  Receipt Date: 20091210
  Transmission Date: 20100525
  Serious: Yes (Hospitalization)
  Sender: FDA-Public Use
  Company Number: FR-WYE-G05115709

PATIENT
  Sex: Female
  Weight: 90 kg

DRUGS (16)
  1. ADVIL [Suspect]
     Indication: OSTEOARTHRITIS
     Route: 048
     Dates: start: 20010101, end: 20031201
  2. CHONDROSULF [Concomitant]
     Indication: OSTEOARTHRITIS
     Dosage: UNKNOWN
     Route: 048
     Dates: start: 19970101
  3. ZYLORIC [Concomitant]
     Indication: HYPERURICAEMIA
     Route: 048
     Dates: start: 19970101
  4. ATHYMIL [Concomitant]
     Indication: DEPRESSION
     Route: 048
     Dates: start: 20010101
  5. NIDREL [Concomitant]
     Indication: HYPERTENSION
     Route: 048
     Dates: start: 20020101
  6. ZESTORETIC [Suspect]
     Indication: HYPERTENSION
     Route: 048
     Dates: start: 20020201
  7. PHYSIOTENS [Suspect]
     Indication: HYPERTENSION
     Route: 048
     Dates: start: 20020201
  8. MOPRAL [Concomitant]
     Indication: PROPHYLAXIS AGAINST GASTROINTESTINAL ULCER
     Route: 048
     Dates: start: 20030401
  9. MOPRAL [Concomitant]
  10. AVLOCARDYL [Concomitant]
     Indication: HYPERTENSION
     Route: 048
     Dates: start: 20031223
  11. ENTOCORT EC [Concomitant]
     Indication: CROHN'S DISEASE
     Dosage: UNKNOWN
     Route: 048
     Dates: start: 20031223
  12. DIPENTUM [Concomitant]
     Indication: CROHN'S DISEASE
     Dosage: UNKNOWN
     Route: 048
     Dates: start: 20031223
  13. DIFFU K [Concomitant]
     Indication: MINERAL SUPPLEMENTATION
     Dosage: UNKNOWN
     Route: 048
     Dates: start: 20031223
  14. MORPHINE [Concomitant]
     Dosage: UNKNOWN
  15. LASILIX [Suspect]
     Dosage: UNKNOWN
     Dates: end: 20031201
  16. AROMASIN [Concomitant]
     Indication: BREAST CANCER
     Route: 048
     Dates: start: 20030206

REACTIONS (2)
  - CONFUSIONAL STATE [None]
  - RENAL FAILURE ACUTE [None]
